FAERS Safety Report 10374244 (Version 2)
Quarter: 2014Q4

REPORT INFORMATION
  Report Type: Report from Study
  Country: DE (occurrence: DE)
  Receive Date: 20140811
  Receipt Date: 20141106
  Transmission Date: 20150528
  Serious: Yes (Hospitalization)
  Sender: FDA-Public Use
  Company Number: DE-BIOGENIDEC-2014BI077268

PATIENT
  Age: 47 Year
  Sex: Female

DRUGS (1)
  1. AVONEX [Suspect]
     Active Substance: INTERFERON BETA-1A
     Indication: MULTIPLE SCLEROSIS
     Route: 030
     Dates: start: 20130801, end: 20141001

REACTIONS (2)
  - Malignant melanoma [Not Recovered/Not Resolved]
  - Breast cancer [Unknown]

NARRATIVE: CASE EVENT DATE: 20140715
